FAERS Safety Report 25874896 (Version 1)
Quarter: 2025Q4

REPORT INFORMATION
  Report Type: Report from Study
  Country: CA (occurrence: CA)
  Receive Date: 20251002
  Receipt Date: 20251002
  Transmission Date: 20260118
  Serious: Yes (Other)
  Sender: JOHNSON AND JOHNSON
  Company Number: CA-JNJFOC-20201036460

PATIENT
  Sex: Female
  Weight: 93.4 kg

DRUGS (5)
  1. REMICADE [Suspect]
     Active Substance: INFLIXIMAB
     Indication: Crohn^s disease
     Dosage: EXPIRY DATE: 31-JUL-2025.?PATIENT HAD DOSE ON 08-DEC-2016.
     Route: 041
     Dates: start: 20160208
  2. REMICADE [Suspect]
     Active Substance: INFLIXIMAB
     Route: 041
  3. REMICADE [Suspect]
     Active Substance: INFLIXIMAB
     Dosage: EXPIRY DATE: 31-JUL-2025.?PATIENT HAD DOSE ON 08-DEC-2016.
     Route: 041
     Dates: start: 20160208
  4. REMICADE [Suspect]
     Active Substance: INFLIXIMAB
     Route: 041
  5. AZATHIOPRINE [Concomitant]
     Active Substance: AZATHIOPRINE
     Indication: Crohn^s disease
     Route: 048

REACTIONS (4)
  - Intestinal stenosis [Not Recovered/Not Resolved]
  - Urinary retention [Recovered/Resolved]
  - Vomiting [Not Recovered/Not Resolved]
  - Diarrhoea [Not Recovered/Not Resolved]
